FAERS Safety Report 5327504-1 (Version None)
Quarter: 2007Q2

REPORT INFORMATION
  Report Type: 
  Country: None (occurrence: None)
  Receive Date: 20070517
  Receipt Date: 20070124
  Transmission Date: 20071010
  Serious: Yes (Hospitalization)
  Sender: FDA-Public Use
  Company Number: US-JNJFOC-20070104215

PATIENT
  Age: 46 Year
  Sex: Female

DRUGS (3)
  1. TRAMADOL HCL [Suspect]
     Indication: SUICIDAL IDEATION
     Route: 065
  2. ACETOMINOPHEN WITH OXYCODONE [Suspect]
     Indication: SUICIDAL IDEATION
     Route: 065
  3. CARISOPRODOL [Suspect]
     Indication: SUICIDAL IDEATION
     Route: 065

REACTIONS (2)
  - INTENTIONAL OVERDOSE [None]
  - SUICIDE ATTEMPT [None]
